FAERS Safety Report 15883258 (Version 2)
Quarter: 2019Q1

REPORT INFORMATION
  Report Type: Report from Study
  Country: US (occurrence: US)
  Receive Date: 20190129
  Receipt Date: 20190207
  Transmission Date: 20190417
  Serious: Yes (Hospitalization)
  Sender: FDA-Public Use
  Company Number: US-IPSEN BIOPHARMACEUTICALS, INC.-2019-01237

PATIENT
  Sex: Female
  Weight: 78.9 kg

DRUGS (2)
  1. SOMATULINE DEPOT [Suspect]
     Active Substance: LANREOTIDE ACETATE
     Indication: ACROMEGALY
     Dosage: UPPER OUTER BUTTOCKS ROTATE BETWEEN SIDES.
     Route: 058
     Dates: start: 20180401, end: 20181108
  2. SOMATULINE DEPOT [Suspect]
     Active Substance: LANREOTIDE ACETATE
     Route: 058
     Dates: start: 20190117

REACTIONS (3)
  - Gallbladder disorder [Unknown]
  - Hospitalisation [Unknown]
  - Urinary tract infection [Unknown]

NARRATIVE: CASE EVENT DATE: 2018
